FAERS Safety Report 8152802-6 (Version None)
Quarter: 2012Q1

REPORT INFORMATION
  Report Type: 
  Country: None (occurrence: None)
  Receive Date: 20120221
  Receipt Date: 20120209
  Transmission Date: 20120608
  Serious: Yes (Death, Hospitalization)
  Sender: FDA-Public Use
  Company Number: US-JNJFOC-20120100400

PATIENT
  Sex: Male
  Weight: 65.8 kg

DRUGS (34)
  1. HEPARIN [Concomitant]
     Route: 065
  2. XENADERM [Concomitant]
     Route: 061
  3. HYDROXYCHLOROQUINE SULFATE [Concomitant]
     Route: 065
  4. METHOTREXATE [Concomitant]
     Dosage: 4 EVERY SUNDAY
     Route: 065
  5. STOOL SOFTENER [Concomitant]
     Route: 065
  6. VITAMIN D [Concomitant]
     Route: 065
  7. REMICADE [Suspect]
     Indication: RHEUMATOID ARTHRITIS
     Dosage: 714.0 (UNITS UNSPECIFIED)
     Route: 042
     Dates: start: 20030402
  8. REMICADE [Suspect]
     Dosage: LAST DOSE, 59TH INFUSION.
     Route: 042
     Dates: start: 20101122, end: 20101122
  9. ZOFRAN [Concomitant]
     Dosage: PRN
     Route: 065
  10. SAW PALMETTO [Concomitant]
     Route: 065
  11. ASPIRIN [Concomitant]
     Route: 065
  12. FOLIC ACID [Concomitant]
     Route: 065
  13. ARTIFICIAL TEARS NOS [Concomitant]
     Route: 065
  14. LEVOPHED [Concomitant]
     Route: 065
  15. AMIODARONE HCL [Concomitant]
     Route: 065
  16. ASPIRIN [Concomitant]
     Route: 065
  17. CALCIUM [Concomitant]
     Route: 065
  18. POTASSIUM CHLORIDE [Concomitant]
     Route: 065
  19. JEVITY [Concomitant]
     Route: 065
  20. MILK OF MAGNESIA TAB [Concomitant]
     Route: 065
  21. PREVACID [Concomitant]
     Route: 065
  22. METOPROLOL TARTRATE [Concomitant]
     Dosage: ONE IN EVENING
     Route: 065
  23. PHENYTOIN SODIUM [Concomitant]
     Route: 065
  24. TIMOLOL MALEATE [Concomitant]
     Dosage: 1 DROP LEFT EYE
     Route: 047
  25. PLAVIX [Concomitant]
     Dosage: DOSE: 75 (UNITS UNSPECIFIED)
     Route: 065
  26. ALL OTHER THERAPEUTIC PRODUCTS [Concomitant]
     Route: 061
  27. LASIX [Concomitant]
     Route: 065
  28. VITAMIN [Concomitant]
     Route: 065
  29. COLACE [Concomitant]
     Route: 065
  30. DULCOLAX [Concomitant]
     Route: 065
  31. FOSAMAX PLUS D [Concomitant]
     Route: 065
  32. AMOXICILLIN [Concomitant]
     Route: 065
  33. FOLIC ACID [Concomitant]
     Route: 065
  34. PREDNISONE [Concomitant]
     Route: 065

REACTIONS (6)
  - ATRIAL FIBRILLATION [None]
  - CARDIOGENIC SHOCK [None]
  - CARDIAC FAILURE CONGESTIVE [None]
  - HYPOTENSION [None]
  - ACUTE MYOCARDIAL INFARCTION [None]
  - CORONARY ARTERY OCCLUSION [None]
